FAERS Safety Report 22806794 (Version 2)
Quarter: 2024Q2

REPORT INFORMATION
  Report Type: Spontaneous
  Country: US (occurrence: US)
  Receive Date: 20230810
  Receipt Date: 20240425
  Transmission Date: 20240715
  Serious: Yes (Other)
  Sender: FDA-Public Use
  Company Number: US-VIIV HEALTHCARE LIMITED-US2023106193

PATIENT
  Sex: Male

DRUGS (3)
  1. VOCABRIA [Suspect]
     Active Substance: CABOTEGRAVIR SODIUM
     Indication: Product used for unknown indication
     Dosage: UNK
     Dates: start: 20230718, end: 20230803
  2. DOXYCYCLINE [Suspect]
     Active Substance: DOXYCYCLINE
     Indication: Product used for unknown indication
     Dosage: UNK
  3. DESCOVY [Concomitant]
     Active Substance: EMTRICITABINE\TENOFOVIR ALAFENAMIDE FUMARATE
     Indication: Product used for unknown indication
     Dosage: UNK

REACTIONS (10)
  - Suicidal ideation [Unknown]
  - Hypersensitivity [Recovering/Resolving]
  - Lip ulceration [Recovering/Resolving]
  - Erythema [Recovering/Resolving]
  - Tongue discomfort [Unknown]
  - Glossodynia [Unknown]
  - Tongue erythema [Unknown]
  - Rash [Unknown]
  - Mouth ulceration [Recovering/Resolving]
  - Euphoric mood [Unknown]

NARRATIVE: CASE EVENT DATE: 20230725
